FAERS Safety Report 6295950-8 (Version None)
Quarter: 2009Q3

REPORT INFORMATION
  Report Type: 
  Country: None (occurrence: None)
  Receive Date: 20090731
  Receipt Date: 20090720
  Transmission Date: 20100115
  Serious: Yes (Hospitalization)
  Sender: FDA-Public Use
  Company Number: ADE2009-0735

PATIENT
  Age: 38 Year
  Sex: Male

DRUGS (7)
  1. DIDANOSINE [Suspect]
     Indication: HIV INFECTION
     Dosage: 250MG - DAILY
  2. TENOFOVIR DISOPROXIL FUMARATE [Suspect]
     Indication: HIV INFECTION
  3. RITOVIR-BOOSTER [Concomitant]
  4. FOSAMPRENAVIR [Concomitant]
  5. PANTOPRAZOLE SODIUM [Concomitant]
  6. EZETIMIBE [Concomitant]
  7. GEMFIBROZIL [Concomitant]

REACTIONS (2)
  - FANCONI SYNDROME [None]
  - NEPHROGENIC DIABETES INSIPIDUS [None]
